FAERS Safety Report 14645458 (Version 1)
Quarter: 2018Q1

REPORT INFORMATION
  Report Type: Spontaneous
  Country: ZA (occurrence: ZA)
  Receive Date: 20180316
  Receipt Date: 20180316
  Transmission Date: 20180509
  Serious: Yes (Hospitalization)
  Sender: FDA-Public Use
  Company Number: ZA-AMGEN-ZAFSP2018035705

PATIENT
  Age: 47 Year
  Sex: Female

DRUGS (1)
  1. ENBREL [Suspect]
     Active Substance: ETANERCEPT
     Indication: PRODUCT USED FOR UNKNOWN INDICATION
     Dosage: UNK
     Route: 065
     Dates: start: 20130620

REACTIONS (8)
  - C-reactive protein increased [Unknown]
  - White blood cell count increased [Unknown]
  - Muscle spasms [Unknown]
  - Condition aggravated [Unknown]
  - Red blood cell sedimentation rate increased [Unknown]
  - Intervertebral disc degeneration [Unknown]
  - Joint range of motion decreased [Unknown]
  - Kyphosis [Unknown]

NARRATIVE: CASE EVENT DATE: 201802
